FAERS Safety Report 13439449 (Version 1)
Quarter: 2017Q2

REPORT INFORMATION
  Report Type: Spontaneous
  Country: IT (occurrence: IT)
  Receive Date: 20170413
  Receipt Date: 20170413
  Transmission Date: 20170830
  Serious: Yes (Life-Threatening)
  Sender: FDA-Public Use
  Company Number: IT-BAYER-2017-066701

PATIENT
  Age: 86 Year
  Sex: Male

DRUGS (6)
  1. CARDIOASPIRIN 100 MG [Suspect]
     Active Substance: ASPIRIN
     Indication: MYOCARDIAL ISCHAEMIA
     Dosage: 100 MG, QD
     Route: 048
  2. LANSOX [Concomitant]
     Active Substance: LANSOPRAZOLE
  3. CONGESCOR [Concomitant]
     Active Substance: BISOPROLOL
  4. APIXABAN [Interacting]
     Active Substance: APIXABAN
     Indication: ATRIAL FIBRILLATION
     Dosage: 5 MG, QD
     Route: 048
  5. SINVACOR [Concomitant]
     Active Substance: SIMVASTATIN
  6. ZYLORIC [Concomitant]
     Active Substance: ALLOPURINOL

REACTIONS (2)
  - Shock haemorrhagic [Recovering/Resolving]
  - Retroperitoneal haematoma [Recovering/Resolving]

NARRATIVE: CASE EVENT DATE: 20170113
